FAERS Safety Report 7445619-9 (Version None)
Quarter: 2011Q2

REPORT INFORMATION
  Report Type: 
  Country: None (occurrence: None)
  Receive Date: 20110410
  Receipt Date: 20110406
  Transmission Date: 20111010
  Serious: Yes (Other)
  Sender: FDA-Public Use
  Company Number: 2011MA003609

PATIENT
  Sex: Male

DRUGS (1)
  1. METOCLOPRAMIDE HCL [Suspect]
     Indication: PRODUCT USED FOR UNKNOWN INDICATION
     Dates: start: 19980101, end: 20100401

REACTIONS (2)
  - FAMILY STRESS [None]
  - TARDIVE DYSKINESIA [None]
